FAERS Safety Report 5389191-6 (Version None)
Quarter: 2007Q3

REPORT INFORMATION
  Report Type: 
  Country: None (occurrence: None)
  Receive Date: 20070713
  Receipt Date: 20070702
  Transmission Date: 20080115
  Serious: Yes (Hospitalization)
  Sender: FDA-Public Use
  Company Number: TPA2007A01429

PATIENT
  Age: 64 Year
  Sex: Male
  Weight: 113.3993 kg

DRUGS (2)
  1. ACTOPLUS MET [Suspect]
     Indication: DIABETES MELLITUS
     Dosage: 15/500 MG, DAILY, PER ORAL
     Route: 048
     Dates: start: 20061001, end: 20070601
  2. UNKNOWN BLOOD PRESSURE MEDICATION (OTHER ANTIHYPERTENSIVES) [Concomitant]

REACTIONS (6)
  - ANAEMIA [None]
  - CARDIAC FAILURE [None]
  - CARDIOMEGALY [None]
  - DYSPNOEA [None]
  - INFLUENZA [None]
  - PULMONARY OEDEMA [None]
